FAERS Safety Report 23057149 (Version 2)
Quarter: 2023Q4

REPORT INFORMATION
  Report Type: Spontaneous
  Country: US (occurrence: US)
  Receive Date: 20231012
  Receipt Date: 20231023
  Transmission Date: 20240110
  Serious: No
  Sender: FDA-Public Use
  Company Number: US-BEH-2023163954

PATIENT
  Age: 51 Year
  Sex: Female
  Weight: 140 kg

DRUGS (50)
  1. HIZENTRA [Suspect]
     Active Substance: HUMAN IMMUNOGLOBULIN G
     Indication: Immunodeficiency
     Dosage: 14 GRAM, QW
     Route: 058
     Dates: start: 20220927
  2. HIZENTRA [Suspect]
     Active Substance: HUMAN IMMUNOGLOBULIN G
     Indication: Primary immunodeficiency syndrome
     Dosage: UNK
     Route: 058
     Dates: start: 20221017
  3. ACETAMINOPHEN [Concomitant]
     Active Substance: ACETAMINOPHEN
  4. ACYCLOVIR [Concomitant]
     Active Substance: ACYCLOVIR
  5. ALBUTEROL SULFATE [Concomitant]
     Active Substance: ALBUTEROL SULFATE
  6. ALPRAZOLAM [Concomitant]
     Active Substance: ALPRAZOLAM
  7. AZITHROMYCIN [Concomitant]
     Active Substance: AZITHROMYCIN
  8. BOOSTRIX [Concomitant]
     Active Substance: TETANUS TOXOID, REDUCED DIPHTHERIA TOXOID AND ACELLULAR PERTUSSIS VACCINE, ADSORBED ANTIGENS
  9. BREO ELLIPTA [Concomitant]
     Active Substance: FLUTICASONE FUROATE\VILANTEROL TRIFENATATE
  10. BUDESONIDE [Concomitant]
     Active Substance: BUDESONIDE
  11. BUPROPION [Concomitant]
     Active Substance: BUPROPION
  12. BUSPIRONE [Concomitant]
     Active Substance: BUSPIRONE HYDROCHLORIDE
  13. CHLORHEX GLUC ALCO [Concomitant]
  14. CITALOPRAM [Concomitant]
     Active Substance: CITALOPRAM HYDROBROMIDE
  15. CYCLOBENZAPRINE [Concomitant]
     Active Substance: CYCLOBENZAPRINE
  16. DIAZEPAM [Concomitant]
     Active Substance: DIAZEPAM
  17. EPINEPHRINE [Concomitant]
     Active Substance: EPINEPHRINE
  18. EPINEPHRINE [Concomitant]
     Active Substance: EPINEPHRINE
  19. ESTRADIOL [Concomitant]
     Active Substance: ESTRADIOL
  20. FLUCONAZOLE [Concomitant]
     Active Substance: FLUCONAZOLE
  21. GABAPENTIN [Concomitant]
     Active Substance: GABAPENTIN
  22. HYDROCHLOROTHIAZIDE [Concomitant]
     Active Substance: HYDROCHLOROTHIAZIDE
  23. HYDROCODONE BITARTRATE AND ACETAMINOPHEN [Concomitant]
     Active Substance: ACETAMINOPHEN\HYDROCODONE BITARTRATE
  24. HYDROCODONE/HOMATROP [Concomitant]
  25. HYDROCORT [HYDROCORTISONE] [Concomitant]
  26. HYDROMORPHONE [Concomitant]
     Active Substance: HYDROMORPHONE
  27. HYDROXYZINE HYDROCHLORIDE [Concomitant]
     Active Substance: HYDROXYZINE HYDROCHLORIDE
  28. ALBUTEROL SULFATE\IPRATROPIUM BROMIDE [Concomitant]
     Active Substance: ALBUTEROL SULFATE\IPRATROPIUM BROMIDE
  29. LIDOCAINE [Concomitant]
     Active Substance: LIDOCAINE
  30. LIDOCAINE VISCOUS [Concomitant]
     Active Substance: LIDOCAINE HYDROCHLORIDE
  31. LORAZEPAM [Concomitant]
     Active Substance: LORAZEPAM
  32. MELOXICAM [Concomitant]
     Active Substance: MELOXICAM
  33. METHYLPREDNISOLONE [Concomitant]
     Active Substance: METHYLPREDNISOLONE
  34. MONTELUKAST [Concomitant]
     Active Substance: MONTELUKAST SODIUM
  35. NEOMYCIN AND POLYMYXIN B SULFATES AND HYDROCORTISONE [Concomitant]
     Active Substance: HYDROCORTISONE\NEOMYCIN SULFATE\POLYMYXIN B SULFATE
  36. ONDANSETRON [Concomitant]
     Active Substance: ONDANSETRON
  37. OXYCODONE [Concomitant]
     Active Substance: OXYCODONE
  38. PAROXETINE [Concomitant]
     Active Substance: PAROXETINE
  39. PHENTERMINE [Concomitant]
     Active Substance: PHENTERMINE
  40. PREDNISONE [Concomitant]
     Active Substance: PREDNISONE
  41. PREGABALIN [Concomitant]
     Active Substance: PREGABALIN
  42. PRIVIGEN [Concomitant]
     Active Substance: HUMAN IMMUNOGLOBULIN G
     Route: 065
  43. PROCHLORPERAZINE MALEATE [Concomitant]
     Active Substance: PROCHLORPERAZINE MALEATE
  44. PROMETHAZINE DM [Concomitant]
     Active Substance: DEXTROMETHORPHAN HYDROBROMIDE\PROMETHAZINE HYDROCHLORIDE
  45. SYMBICORT [Concomitant]
     Active Substance: BUDESONIDE\FORMOTEROL FUMARATE DIHYDRATE
  46. TRAMADOL HCL [Concomitant]
     Active Substance: TRAMADOL HYDROCHLORIDE
  47. TRIAMCINOLONE [Concomitant]
     Active Substance: TRIAMCINOLONE
  48. VALACYCLOVIR [Concomitant]
     Active Substance: VALACYCLOVIR HYDROCHLORIDE
  49. VENLAFAXINE [Concomitant]
     Active Substance: VENLAFAXINE HYDROCHLORIDE
  50. VITAMIN D NOS [Concomitant]
     Active Substance: VITAMIN D NOS

REACTIONS (10)
  - Tooth extraction [Recovering/Resolving]
  - COVID-19 [Not Recovered/Not Resolved]
  - Cough [Not Recovered/Not Resolved]
  - Pyrexia [Not Recovered/Not Resolved]
  - Nasopharyngitis [Not Recovered/Not Resolved]
  - Rhinorrhoea [Not Recovered/Not Resolved]
  - Respiratory tract congestion [Not Recovered/Not Resolved]
  - Feeling abnormal [Not Recovered/Not Resolved]
  - No adverse event [Not Recovered/Not Resolved]
  - Therapy interrupted [Not Recovered/Not Resolved]

NARRATIVE: CASE EVENT DATE: 20230921
